FAERS Safety Report 13846161 (Version 1)
Quarter: 2017Q3

REPORT INFORMATION
  Report Type: Spontaneous
  Country: US (occurrence: US)
  Receive Date: 20170808
  Receipt Date: 20170808
  Transmission Date: 20171127
  Serious: No
  Sender: FDA-Public Use
  Company Number: US-ROCHE-791606

PATIENT
  Sex: Female
  Weight: 44.5 kg

DRUGS (7)
  1. CITALOPRAM [Concomitant]
     Active Substance: CITALOPRAM HYDROBROMIDE
     Route: 065
  2. BONIVA [Suspect]
     Active Substance: IBANDRONATE SODIUM
     Indication: OSTEOPOROSIS
     Dosage: SINCE 1 YEAR. ROUTE ORAL.
     Route: 048
  3. TAMOXIFEN [Concomitant]
     Active Substance: TAMOXIFEN
     Route: 065
  4. VITAMIN D [Concomitant]
     Active Substance: CHOLECALCIFEROL
     Dosage: 200 CU, DAILY.
     Route: 065
  5. CITRACAL [Concomitant]
     Active Substance: CALCIUM CITRATE
     Dosage: 1-2 DAILY CENTRUM.
     Route: 065
  6. BONIVA [Suspect]
     Active Substance: IBANDRONATE SODIUM
     Dosage: ROUTE IV.
     Route: 048
  7. PROVIGIL [Concomitant]
     Active Substance: MODAFINIL
     Route: 065

REACTIONS (1)
  - Rash papular [Unknown]
